FAERS Safety Report 4477836-4 (Version None)
Quarter: 2004Q4

REPORT INFORMATION
  Report Type: 
  Country: None (occurrence: None)
  Receive Date: 20041014
  Receipt Date: 20041004
  Transmission Date: 20050328
  Serious: No
  Sender: FDA-Public Use
  Company Number: 2004UW20861

PATIENT
  Age: 57 Year
  Sex: Male

DRUGS (2)
  1. LOSEC [Suspect]
  2. SUCRALFATE [Concomitant]

REACTIONS (2)
  - HAEMORRHAGE [None]
  - RECTAL HAEMORRHAGE [None]
